FAERS Safety Report 14782446 (Version 1)
Quarter: 2018Q2

REPORT INFORMATION
  Report Type: Spontaneous
  Country: BR (occurrence: BR)
  Receive Date: 20180420
  Receipt Date: 20180420
  Transmission Date: 20180711
  Serious: Yes (Hospitalization, Other)
  Sender: FDA-Public Use
  Company Number: BR-B.I. PHARMACEUTICALS,INC./RIDGEFIELD-2018-BI-021442

PATIENT
  Age: 87 Year
  Sex: Female
  Weight: 55 kg

DRUGS (13)
  1. ATENSINA [Suspect]
     Active Substance: CLONIDINE
     Indication: HYPERTENSION
     Route: 048
     Dates: end: 20180307
  2. LASIX [Concomitant]
     Active Substance: FUROSEMIDE
     Indication: RENAL IMPAIRMENT
     Route: 048
  3. ACERTIL [Concomitant]
     Active Substance: PERINDOPRIL ARGININE
     Indication: HYPERTENSION
     Route: 048
     Dates: start: 20180315
  4. BAMIFIX [Concomitant]
     Active Substance: BAMIFYLLINE HYDROCHLORIDE
     Indication: ASTHMA
     Route: 048
     Dates: start: 2016
  5. APRESOLINA [Concomitant]
     Active Substance: HYDRALAZINE HYDROCHLORIDE
     Indication: BLOOD PRESSURE ABNORMAL
     Route: 048
  6. ANCORON [Concomitant]
     Active Substance: AMIODARONE HYDROCHLORIDE
     Indication: CARDIAC FIBRILLATION
     Route: 048
     Dates: start: 2015
  7. LIPITOR [Concomitant]
     Active Substance: ATORVASTATIN CALCIUM
     Indication: BLOOD CHOLESTEROL ABNORMAL
     Route: 048
     Dates: start: 20180315
  8. MONOCORDIL [Concomitant]
     Active Substance: ISOSORBIDE MONONITRATE
     Indication: BLOOD PRESSURE ABNORMAL
     Route: 048
  9. ATENSINA [Suspect]
     Active Substance: CLONIDINE
     Indication: CARDIAC DISORDER
  10. DIVELOL [Concomitant]
     Indication: HYPERTENSION
     Route: 048
  11. FOSTAIR [Concomitant]
     Active Substance: BECLOMETHASONE\FORMOTEROL
     Indication: ASTHMA
     Dosage: STRENGTH: 6/100 MILLIGRAM; FORM: AEROSOL
     Route: 048
     Dates: start: 20180307
  12. HEMAX [Concomitant]
     Indication: ANAEMIA
     Dosage: STRENGTH: 4000 IU/ML
     Route: 058
     Dates: start: 2016
  13. COMBIRON [Concomitant]
     Active Substance: ASCORBIC ACID\FERROUS SULFATE\FOLIC ACID\PYRIDOXINE HYDROCHLORIDE\RIBOFLAVIN\THIAMINE MONONITRATE
     Indication: ANAEMIA
     Route: 048
     Dates: start: 2016

REACTIONS (4)
  - Hypertension [Not Recovered/Not Resolved]
  - Pneumonia [Recovered/Resolved]
  - Pulmonary oedema [Recovering/Resolving]
  - Pneumonia [Not Recovered/Not Resolved]

NARRATIVE: CASE EVENT DATE: 20171212
